FAERS Safety Report 13274911 (Version 2)
Quarter: 2017Q3

REPORT INFORMATION
  Report Type: Spontaneous
  Country: US (occurrence: US)
  Receive Date: 20170227
  Receipt Date: 20170803
  Transmission Date: 20171127
  Serious: Yes (Life-Threatening, Hospitalization, Other)
  Sender: FDA-Public Use
  Company Number: US-MALLINCKRODT-T201700729

PATIENT
  Age: 60 Year
  Sex: Female

DRUGS (6)
  1. BACLOFEN. [Suspect]
     Active Substance: BACLOFEN
     Indication: PRODUCT USED FOR UNKNOWN INDICATION
     Dosage: UNK
     Route: 037
  2. OXYCODONE [Suspect]
     Active Substance: OXYCODONE
     Dosage: 1620 MG DAILY DOSE (MEDD)
     Route: 065
     Dates: start: 2008
  3. OXYCODONE [Suspect]
     Active Substance: OXYCODONE
     Indication: BACK PAIN
     Dosage: 15 MG, QID OR 90 MG DAILY DOSE (MEDD)
     Route: 048
     Dates: end: 2000
  4. OXYCODONE [Suspect]
     Active Substance: OXYCODONE
     Dosage: 90 MG IN ONE DAY
     Route: 048
  5. OXYCODONE [Suspect]
     Active Substance: OXYCODONE
     Dosage: 780 MG DAILY DOSE (MEDD)
     Route: 065
     Dates: start: 2000
  6. HYDROMORPHONE HYDROCHLORIDE. [Suspect]
     Active Substance: HYDROMORPHONE HYDROCHLORIDE
     Indication: BACK PAIN
     Dosage: 32 MG
     Route: 048

REACTIONS (4)
  - Staphylococcal infection [Recovered/Resolved]
  - Narcotic bowel syndrome [Recovered/Resolved]
  - Respiratory failure [Recovered/Resolved]
  - Mobility decreased [Not Recovered/Not Resolved]

NARRATIVE: CASE EVENT DATE: 2000
